FAERS Safety Report 5916547-2 (Version None)
Quarter: 2008Q4

REPORT INFORMATION
  Report Type: 
  Country: None (occurrence: None)
  Receive Date: 20081013
  Receipt Date: 20081006
  Transmission Date: 20090506
  Serious: Yes (Other)
  Sender: FDA-Public Use
  Company Number: B0540256A

PATIENT
  Sex: Female

DRUGS (1)
  1. AMOXICILLIN [Suspect]

REACTIONS (4)
  - DYSPHAGIA [None]
  - EYE SWELLING [None]
  - PHARYNGEAL OEDEMA [None]
  - RASH [None]
